FAERS Safety Report 9418959 (Version 2)
Quarter: 2013Q3

REPORT INFORMATION
  Report Type: Spontaneous
  Country: US (occurrence: US)
  Receive Date: 20130725
  Receipt Date: 20130806
  Transmission Date: 20140515
  Serious: No
  Sender: FDA-Public Use
  Company Number: US-BAYER-2013-089310

PATIENT
  Age: 20 Year
  Sex: Female

DRUGS (1)
  1. AVELOX [Suspect]
     Indication: SINUSITIS
     Dosage: 400 MG, QD
     Route: 048
     Dates: start: 20130718

REACTIONS (5)
  - Fatigue [None]
  - Myalgia [None]
  - Myalgia [None]
  - Myalgia [None]
  - Tendon pain [None]
